FAERS Safety Report 13092833 (Version 2)
Quarter: 2017Q1

REPORT INFORMATION
  Report Type: Spontaneous
  Country: US (occurrence: US)
  Receive Date: 20170106
  Receipt Date: 20170314
  Transmission Date: 20170428
  Serious: No
  Sender: FDA-Public Use
  Company Number: US-JNJFOC-20161214605

PATIENT
  Age: 59 Year
  Sex: Female

DRUGS (1)
  1. YONDELIS [Suspect]
     Active Substance: TRABECTEDIN
     Indication: LEIOMYOSARCOMA
     Dosage: PATIENT RECEIVED 6 CYCLES OF TRABECTEDIN
     Route: 042

REACTIONS (3)
  - Mass [Unknown]
  - Pain [Unknown]
  - Erythema [Unknown]
